FAERS Safety Report 7012997-4 (Version None)
Quarter: 2010Q3

REPORT INFORMATION
  Report Type: 
  Country: None (occurrence: None)
  Receive Date: 20100924
  Receipt Date: 20100917
  Transmission Date: 20110219
  Serious: Yes (Other)
  Sender: FDA-Public Use
  Company Number: AT-AMGEN-QUU436560

PATIENT
  Age: 57 Year
  Sex: Female
  Weight: 78 kg

DRUGS (5)
  1. NPLATE [Suspect]
     Indication: IDIOPATHIC THROMBOCYTOPENIC PURPURA
     Dates: start: 20090515, end: 20100910
  2. ANTIDEPRESSANTS [Concomitant]
     Route: 048
  3. SEROQUEL [Concomitant]
     Route: 048
  4. EUTHYROX [Concomitant]
     Route: 048
  5. NEXIUM [Concomitant]
     Route: 048

REACTIONS (6)
  - DRUG EFFECT DECREASED [None]
  - DRUG SPECIFIC ANTIBODY PRESENT [None]
  - PETECHIAE [None]
  - PLATELET COUNT DECREASED [None]
  - RETICULIN INCREASED [None]
  - TACHYPHYLAXIS [None]
